FAERS Safety Report 5570331-0 (Version None)
Quarter: 2007Q4

REPORT INFORMATION
  Report Type: 
  Country: None (occurrence: None)
  Receive Date: 20071221
  Receipt Date: 20071210
  Transmission Date: 20080405
  Serious: Yes (Hospitalization)
  Sender: FDA-Public Use
  Company Number: PHHY2007AR00896

PATIENT
  Age: 84 Year
  Sex: Male

DRUGS (5)
  1. ENALAPRIL [Concomitant]
  2. ATENOLOL [Concomitant]
  3. AMLODIPINE [Concomitant]
  4. ACETAMINOPHEN [Concomitant]
  5. DIOVAN HCT [Suspect]
     Indication: HYPERTENSION
     Dosage: 160 MG, QD
     Dates: end: 20070701

REACTIONS (3)
  - CEREBROVASCULAR ACCIDENT [None]
  - HEMIPLEGIA [None]
  - SPEECH DISORDER [None]
